FAERS Safety Report 9530737 (Version 1)
Quarter: 2013Q2

REPORT INFORMATION
  Report Type: Spontaneous
  Country: US (occurrence: None)
  Receive Date: 20130418
  Receipt Date: 20130418
  Transmission Date: 20140414
  Serious: Yes (Other)
  Sender: FDA-Public Use
  Company Number: 1301USA001855

PATIENT
  Age: 25 Year
  Sex: Male

DRUGS (4)
  1. MONTELUKAST SODIUM [Suspect]
     Indication: ASTHMA
     Dosage: 10 MG/DAY
  2. BECLOMETHASONE DIPROPIONATE [Suspect]
  3. ALBUTEROL [Suspect]
     Indication: RHINITIS ALLERGIC
  4. FEXOFENADINE HYDROCHLORIDE [Suspect]
     Dosage: 120 MG/DAY, ORAL
     Route: 048

REACTIONS (4)
  - Myalgia [None]
  - Headache [None]
  - Drug interaction [None]
  - Arthralgia [None]
